FAERS Safety Report 15585664 (Version 3)
Quarter: 2018Q4

REPORT INFORMATION
  Report Type: Report from Study
  Country: None (occurrence: IL)
  Receive Date: 20181104
  Receipt Date: 20181124
  Transmission Date: 20190205
  Serious: Yes (Hospitalization, Other)
  Sender: FDA-Public Use
  Company Number: IL-ABBVIE-18K-082-2538586-00

PATIENT
  Sex: Female
  Weight: 45 kg

DRUGS (3)
  1. MAVIRET [Suspect]
     Active Substance: GLECAPREVIR\PIBRENTASVIR
     Indication: HEPATITIS C
     Route: 048
     Dates: start: 201810
  2. NEXIUM [Concomitant]
     Active Substance: ESOMEPRAZOLE MAGNESIUM
     Indication: PRODUCT USED FOR UNKNOWN INDICATION
  3. ENSURE [Concomitant]
     Active Substance: AMINO ACIDS\DEXTROSE\ELECTROLYTES NOS\SOYBEAN OIL\VITAMINS
     Indication: PRODUCT USED FOR UNKNOWN INDICATION

REACTIONS (16)
  - Injury [Unknown]
  - Loss of personal independence in daily activities [Unknown]
  - Influenza like illness [Not Recovered/Not Resolved]
  - Loss of consciousness [Recovered/Resolved]
  - Constipation [Unknown]
  - Hypersomnia [Unknown]
  - Chills [Unknown]
  - Feeling abnormal [Unknown]
  - Bone pain [Unknown]
  - Feeling cold [Not Recovered/Not Resolved]
  - Tremor [Unknown]
  - Malaise [Unknown]
  - Abdominal distension [Unknown]
  - Depressed mood [Unknown]
  - Fatigue [Unknown]
  - Dizziness [Recovered/Resolved]

NARRATIVE: CASE EVENT DATE: 201810
